FAERS Safety Report 6355986-5 (Version None)
Quarter: 2009Q3

REPORT INFORMATION
  Report Type: 
  Country: None (occurrence: None)
  Receive Date: 20090915
  Receipt Date: 20090904
  Transmission Date: 20100115
  Serious: Yes (Life-Threatening, Other)
  Sender: FDA-Public Use
  Company Number: US-MYLANLABS-2009S1010052

PATIENT
  Age: 56 Year
  Sex: Female
  Weight: 66.23 kg

DRUGS (8)
  1. DIVALPROEX SODIUM EXTENDED RELEASE [Suspect]
     Indication: MANIA
     Route: 048
     Dates: start: 20090524, end: 20090101
  2. DIVALPROEX SODIUM EXTENDED RELEASE [Suspect]
     Indication: AGITATION
     Route: 048
     Dates: start: 20090524, end: 20090101
  3. DIVALPROEX SODIUM EXTENDED RELEASE [Suspect]
     Indication: MOOD ALTERED
     Route: 048
     Dates: start: 20090524, end: 20090101
  4. COZAAR [Concomitant]
  5. ZOLOFT [Concomitant]
  6. VITAMIN D [Concomitant]
  7. VISTARIL [Concomitant]
     Dosage: AT BEDTIME AS NEEDED
     Route: 048
  8. ZYPREXA ZYDIS [Concomitant]
     Route: 048

REACTIONS (5)
  - ANGIOEDEMA [None]
  - DYSARTHRIA [None]
  - DYSPNOEA [None]
  - PARAESTHESIA ORAL [None]
  - SWOLLEN TONGUE [None]
